FAERS Safety Report 5351111-8 (Version None)
Quarter: 2007Q2

REPORT INFORMATION
  Report Type: 
  Country: None (occurrence: None)
  Receive Date: 20070608
  Receipt Date: 20070531
  Transmission Date: 20071010
  Serious: No
  Sender: FDA-Public Use
  Company Number: US-ASTRAZENECA-2006UW07980

PATIENT
  Age: 50 Year
  Sex: Male
  Weight: 104.5 kg

DRUGS (8)
  1. SEROQUEL [Suspect]
     Indication: SLEEP DISORDER
     Route: 048
     Dates: start: 20020101, end: 20060101
  2. SEROQUEL [Suspect]
     Indication: DEPRESSION
     Route: 048
     Dates: start: 20020101, end: 20060101
  3. ZOLOFT [Concomitant]
  4. WELLBUTRIN [Concomitant]
  5. INSULIN [Concomitant]
  6. GLUCOSE [Concomitant]
  7. ZOCOR [Concomitant]
  8. ELAVIL [Concomitant]

REACTIONS (5)
  - DIABETES MELLITUS [None]
  - HYPERGLYCAEMIA [None]
  - HYPERLIPIDAEMIA [None]
  - INJURY [None]
  - OBESITY [None]
